FAERS Safety Report 4837668-1 (Version None)
Quarter: 2005Q4

REPORT INFORMATION
  Report Type: 
  Country: None (occurrence: None)
  Receive Date: 20051128
  Receipt Date: 20050902
  Transmission Date: 20060501
  Serious: Yes (Hospitalization, Other)
  Sender: FDA-Public Use
  Company Number: US-MERCK-0509USA00449

PATIENT
  Age: 55 Year
  Sex: Female
  Weight: 73 kg

DRUGS (22)
  1. VIOXX [Suspect]
     Indication: ARTHRALGIA
     Route: 048
     Dates: start: 20000210, end: 20041001
  2. AMITRIPTYLINE HYDROCHLORIDE [Concomitant]
     Route: 065
  3. AMOXICILLIN [Concomitant]
     Route: 065
  4. ACETAMINOPHEN AND CODEINE [Concomitant]
     Route: 065
     Dates: start: 20020619, end: 20020901
  5. CELEXA [Concomitant]
     Route: 048
  6. CEPHALEXIN [Concomitant]
     Route: 065
  7. CATAFLAM [Concomitant]
     Route: 065
     Dates: start: 19991124, end: 20000401
  8. EFFEXOR [Concomitant]
     Route: 065
  9. ESTRATEST [Concomitant]
     Route: 065
  10. ACETAMINOPHEN AND HYDROCODONE BITARTRATE [Concomitant]
     Route: 065
     Dates: start: 20021210, end: 20030101
  11. LAMICTAL [Concomitant]
     Route: 065
  12. LEVOTHYROXINE SODIUM [Concomitant]
     Route: 065
  13. LEVOXYL [Concomitant]
     Route: 048
  14. NITRO MACK [Concomitant]
     Route: 065
  15. OXAPROZIN [Concomitant]
     Route: 065
     Dates: start: 20021210, end: 20030201
  16. PIROXICAM [Concomitant]
     Route: 065
     Dates: start: 20030331, end: 20030401
  17. INDERAL [Concomitant]
     Route: 048
  18. SEROQUEL [Concomitant]
     Route: 048
  19. ULTRACET [Concomitant]
     Route: 065
     Dates: start: 20021017, end: 20021101
  20. VEETIDS [Concomitant]
     Route: 065
  21. ZYPREXA [Concomitant]
     Route: 065
  22. XANAX [Concomitant]
     Route: 048

REACTIONS (14)
  - ANXIETY DISORDER [None]
  - BACK INJURY [None]
  - DEEP VEIN THROMBOSIS [None]
  - DEPRESSION [None]
  - FALL [None]
  - GALLBLADDER DISORDER [None]
  - JOINT SPRAIN [None]
  - LOBAR PNEUMONIA [None]
  - OLIGURIA [None]
  - PERIORBITAL HAEMATOMA [None]
  - PULMONARY EMBOLISM [None]
  - SMALL INTESTINAL OBSTRUCTION [None]
  - URINARY TRACT INFECTION [None]
  - UTERINE DISORDER [None]
